FAERS Safety Report 8814139 (Version 2)
Quarter: 2012Q4

REPORT INFORMATION
  Report Type: 
  Country: US (occurrence: US)
  Receive Date: 20120928
  Receipt Date: 20121019
  Transmission Date: 20130627
  Serious: Yes (Other)
  Sender: FDA-Public Use
  Company Number: US-JNJFOC-20120907450

PATIENT
  Age: 48 None
  Sex: Female
  Weight: 68.04 kg

DRUGS (12)
  1. UNSPECIFIED FENTANYL TRANSDERMAL SYSTEM [Suspect]
     Indication: SURGERY
     Route: 062
     Dates: start: 2008, end: 2008
  2. UNSPECIFIED FENTANYL TRANSDERMAL SYSTEM [Suspect]
     Indication: SURGERY
     Route: 062
  3. DURAGESIC [Suspect]
     Indication: SURGERY
     Route: 062
     Dates: start: 2008
  4. DURAGESIC [Suspect]
     Indication: SURGERY
     Route: 062
     Dates: start: 2008, end: 2008
  5. FENTANYL TRANSDERMAL SYSTEM [Suspect]
     Indication: SURGERY
     Route: 062
  6. DURAGESIC [Suspect]
     Indication: SURGERY
     Route: 062
     Dates: end: 2012
  7. DURAGESIC [Suspect]
     Indication: SURGERY
     Route: 062
     Dates: start: 20120914
  8. DURAGESIC [Suspect]
     Indication: SURGERY
     Route: 062
  9. STEROIDS [Suspect]
     Indication: ACCIDENT
     Route: 008
     Dates: start: 2005, end: 2012
  10. STEROIDS [Suspect]
     Indication: SURGERY
     Route: 008
     Dates: start: 2005, end: 2012
  11. ATIVAN [Suspect]
     Indication: PANIC ATTACK
     Route: 042
     Dates: start: 20120911
  12. LORTAB [Concomitant]
     Indication: PAIN
     Dosage: 500 mg tablet/ 100 mg as needed
     Route: 048
     Dates: start: 2005

REACTIONS (13)
  - Thyrotoxic crisis [Not Recovered/Not Resolved]
  - Panic attack [Unknown]
  - Blood pressure increased [Not Recovered/Not Resolved]
  - Blood glucose increased [Recovered/Resolved]
  - Heart rate increased [Not Recovered/Not Resolved]
  - Blood glucose decreased [Unknown]
  - Drug ineffective [Not Recovered/Not Resolved]
  - Application site exfoliation [Not Recovered/Not Resolved]
  - Application site burn [Recovered/Resolved]
  - Skin irritation [Not Recovered/Not Resolved]
  - Product quality issue [Unknown]
  - Nightmare [Not Recovered/Not Resolved]
  - Product physical issue [Unknown]
